FAERS Safety Report 10545514 (Version 2)
Quarter: 2014Q4

REPORT INFORMATION
  Report Type: Spontaneous
  Country: US (occurrence: US)
  Receive Date: 20141027
  Receipt Date: 20141027
  Transmission Date: 20150529
  Serious: Yes (Other)
  Sender: FDA-Public Use
  Company Number: US-ASTELLAS-2014US004339

PATIENT
  Age: 89 Year
  Sex: Female

DRUGS (1)
  1. LEXISCAN [Suspect]
     Active Substance: REGADENOSON
     Indication: SCAN MYOCARDIAL PERFUSION
     Dosage: UNK, TOTAL DOSE
     Route: 042
     Dates: start: 20140414, end: 20140414

REACTIONS (5)
  - Headache [Unknown]
  - Musculoskeletal pain [Recovered/Resolved]
  - Feeling cold [Unknown]
  - Tremor [Unknown]
  - Blood pressure increased [Recovered/Resolved]

NARRATIVE: CASE EVENT DATE: 20140414
